FAERS Safety Report 20355674 (Version 1)
Quarter: 2022Q1

REPORT INFORMATION
  Report Type: Spontaneous
  Country: US (occurrence: US)
  Receive Date: 20220120
  Receipt Date: 20220120
  Transmission Date: 20220424
  Serious: No
  Sender: FDA-Public Use
  Company Number: US-009507513-2201USA000416

PATIENT
  Age: 26 Year
  Sex: Female

DRUGS (2)
  1. ALBUTEROL SULFATE [Suspect]
     Active Substance: ALBUTEROL SULFATE
     Indication: Asthma
     Dosage: STRENGTH OR DOSE 108 MICROGRAMS (MCG), 1 TO 2 PUFFS AS NEEDED
     Route: 055
     Dates: start: 20211224
  2. ALBUTEROL SULFATE [Suspect]
     Active Substance: ALBUTEROL SULFATE
     Indication: Asthma
     Dosage: STRENGTH OR DOSE 108 MICROGRAMS (MCG), 1 TO 2 PUFFS AS NEEDED
     Route: 055
     Dates: start: 20211224

REACTIONS (7)
  - Device defective [Unknown]
  - Drug delivery system issue [Unknown]
  - Poor quality device used [Unknown]
  - Wrong dose [Unknown]
  - Product dose omission issue [Unknown]
  - Maternal exposure during pregnancy [Unknown]
  - No adverse event [Unknown]

NARRATIVE: CASE EVENT DATE: 20220102
